FAERS Safety Report 9767759 (Version 1)
Quarter: 2013Q4

REPORT INFORMATION
  Report Type: Report from Study
  Country: BR (occurrence: BR)
  Receive Date: 20131217
  Receipt Date: 20131217
  Transmission Date: 20140711
  Serious: Yes (Hospitalization, Other)
  Sender: FDA-Public Use
  Company Number: PHHY2013BR147259

PATIENT
  Sex: Female
  Weight: 102 kg

DRUGS (1)
  1. DIOVAN AMLO FIX [Suspect]
     Dosage: UNK (320/5MG), UNK

REACTIONS (1)
  - Cerebrovascular accident [Recovering/Resolving]
